FAERS Safety Report 11196480 (Version 1)
Quarter: 2015Q2

REPORT INFORMATION
  Report Type: Spontaneous
  Country: US (occurrence: None)
  Receive Date: 20150616
  Receipt Date: 20150616
  Transmission Date: 20150821
  Serious: Yes (Other)
  Sender: FDA-Public Use
  Company Number: None

PATIENT
  Age: 3 Year
  Sex: Male
  Weight: 15.88 kg

DRUGS (2)
  1. AMOXICILLIN AND CLAVULANATE POTA 600 MG SANDOZ [Suspect]
     Active Substance: AMOXICILLIN\CLAVULANATE POTASSIUM
     Indication: EAR INFECTION
     Dosage: 3/4 TSP TWICE DAILY TAKEN BY MOUTH
     Route: 048
  2. MULTI VITAMIN [Concomitant]
     Active Substance: VITAMINS

REACTIONS (4)
  - Product taste abnormal [None]
  - Abdominal pain upper [None]
  - Dysgeusia [None]
  - Thirst [None]

NARRATIVE: CASE EVENT DATE: 20150612
